FAERS Safety Report 25749073 (Version 1)
Quarter: 2025Q3

REPORT INFORMATION
  Report Type: Spontaneous
  Country: US (occurrence: US)
  Receive Date: 20250902
  Receipt Date: 20250902
  Transmission Date: 20251020
  Serious: No
  Sender: ALEXION PHARMACEUTICALS
  Company Number: US-AstraZeneca-CH-00940999A

PATIENT
  Age: 54 Year
  Sex: Female

DRUGS (2)
  1. CALQUENCE [Suspect]
     Active Substance: ACALABRUTINIB
     Indication: Mantle cell lymphoma
     Route: 065
  2. RITUXAN [Suspect]
     Active Substance: RITUXIMAB
     Route: 065

REACTIONS (2)
  - White blood cell count increased [Unknown]
  - Liver function test increased [Unknown]
